FAERS Safety Report 5144109-6 (Version None)
Quarter: 2006Q4

REPORT INFORMATION
  Report Type: 
  Country: None (occurrence: None)
  Receive Date: 20061106
  Receipt Date: 20061024
  Transmission Date: 20070319
  Serious: Yes (Hospitalization)
  Sender: FDA-Public Use
  Company Number: PHHO2006MX17614

PATIENT
  Age: 19 Year
  Sex: Male

DRUGS (5)
  1. MYCOPHENOLATE MOFETIL [Concomitant]
     Indication: RENAL TRANSPLANT
     Dates: start: 20060817, end: 20060820
  2. METHYLPREDNISOLONE 4MG TAB [Concomitant]
     Indication: RENAL TRANSPLANT
     Dates: start: 20060817, end: 20060818
  3. PREDNISONE TAB [Concomitant]
     Indication: RENAL TRANSPLANT
     Dates: start: 20060819, end: 20060820
  4. VALGANCICLOVIR HCL [Concomitant]
     Dates: start: 20060816, end: 20060820
  5. CYCLOSPORINE [Suspect]
     Indication: RENAL TRANSPLANT
     Dosage: 550 MG/DAY
     Route: 048
     Dates: start: 20060817, end: 20060820

REACTIONS (4)
  - COMPLICATIONS OF TRANSPLANTED KIDNEY [None]
  - NEPHRECTOMY [None]
  - RENAL VEIN OCCLUSION [None]
  - RENAL VEIN THROMBOSIS [None]
